FAERS Safety Report 9324673 (Version 1)
Quarter: 2013Q2

REPORT INFORMATION
  Report Type: Spontaneous
  Country: US (occurrence: US)
  Receive Date: 20130603
  Receipt Date: 20130603
  Transmission Date: 20140414
  Serious: No
  Sender: FDA-Public Use
  Company Number: US-PFIZER INC-2013167383

PATIENT
  Age: 28 Year
  Sex: Female
  Weight: 54.42 kg

DRUGS (5)
  1. CHANTIX [Suspect]
     Indication: EX-TOBACCO USER
     Dosage: 0.5 MG, 1X/DAY
     Dates: start: 20130523
  2. CHANTIX [Suspect]
     Dosage: 0.5 MG, 2X/DAY
  3. TOPAMAX [Concomitant]
     Dosage: 100 MG, 1X/DAY
  4. NADOLOL [Concomitant]
     Indication: MIGRAINE
     Dosage: 50 MG, 1X/DAY
  5. MAGNESIUM [Concomitant]
     Dosage: 500 MG, 1X/DAY

REACTIONS (3)
  - Activities of daily living impaired [Not Recovered/Not Resolved]
  - Malaise [Not Recovered/Not Resolved]
  - Vomiting [Not Recovered/Not Resolved]
